FAERS Safety Report 18558631 (Version 1)
Quarter: 2020Q4

REPORT INFORMATION
  Report Type: Spontaneous
  Country: US (occurrence: US)
  Receive Date: 20201130
  Receipt Date: 20201130
  Transmission Date: 20210114
  Serious: No
  Sender: FDA-Public Use
  Company Number: US-EVOLUS, INC.-2020EV000580

PATIENT
  Age: 55 Year
  Sex: Female
  Weight: 72.64 kg

DRUGS (3)
  1. JEUVEAU [Suspect]
     Active Substance: PRABOTULINUMTOXINA-XVFS
     Indication: PRODUCT USED FOR UNKNOWN INDICATION
     Dosage: 3 TREATMENTS - 12 UNITS GLABELLAR, 8 UNITS CROWS FEET AND 4 UNITS FOREHEAD
     Dates: start: 20200930
  2. JEUVEAU [Suspect]
     Active Substance: PRABOTULINUMTOXINA-XVFS
     Indication: SKIN WRINKLING
     Dosage: 3 TREATMENTS - 12 UNITS GLABELLAR, 8 UNITS CROWS FEET AND 4 UNITS FOREHEAD
     Dates: start: 20200820
  3. JEUVEAU [Suspect]
     Active Substance: PRABOTULINUMTOXINA-XVFS
     Indication: SKIN WRINKLING
     Dosage: 3 TREATMENTS - 12 UNITS GLABELLAR, 8 UNITS CROWS FEET AND 4 UNITS FOREHEAD

REACTIONS (2)
  - Inappropriate schedule of product administration [Unknown]
  - Therapeutic product effect decreased [Unknown]
